FAERS Safety Report 8427812-1 (Version None)
Quarter: 2012Q2

REPORT INFORMATION
  Report Type: 
  Country: None (occurrence: None)
  Receive Date: 20120611
  Receipt Date: 20120531
  Transmission Date: 20120825
  Serious: Yes (Disabling)
  Sender: FDA-Public Use
  Company Number: AU-FRI-1000031167

PATIENT
  Age: 63 Year
  Sex: Male

DRUGS (2)
  1. LEXAPRO [Suspect]
     Indication: DEPRESSION
     Dosage: OVERDOSE 40 MG  - DOWNTITRATED
     Route: 048
     Dates: start: 20091201
  2. PROTHIADEN [Concomitant]
     Dosage: 100 MG

REACTIONS (2)
  - OVERDOSE [None]
  - WITHDRAWAL SYNDROME [None]
